FAERS Safety Report 20792408 (Version 1)
Quarter: 2022Q2

REPORT INFORMATION
  Report Type: Spontaneous
  Country: RO (occurrence: RO)
  Receive Date: 20220506
  Receipt Date: 20220506
  Transmission Date: 20220721
  Serious: Yes (Hospitalization)
  Sender: FDA-Public Use
  Company Number: RO-STRIDES ARCOLAB LIMITED-2022SP004980

PATIENT
  Age: 42 Year
  Sex: Female

DRUGS (1)
  1. ALBENDAZOLE [Suspect]
     Active Substance: ALBENDAZOLE
     Indication: Rash pruritic
     Dosage: 400 MILLIGRAM PER DAY
     Route: 065

REACTIONS (4)
  - Self-medication [Unknown]
  - Intentional product misuse [Unknown]
  - Acute hepatic failure [Recovered/Resolved]
  - Off label use [Unknown]
